FAERS Safety Report 7911329-4 (Version None)
Quarter: 2011Q4

REPORT INFORMATION
  Report Type: 
  Country: None (occurrence: None)
  Receive Date: 20111114
  Receipt Date: 20111102
  Transmission Date: 20120403
  Serious: Yes (Hospitalization)
  Sender: FDA-Public Use
  Company Number: US-ELI_LILLY_AND_COMPANY-US201111001315

PATIENT
  Sex: Female

DRUGS (3)
  1. HUMULIN 70/30 [Suspect]
     Indication: TYPE 2 DIABETES MELLITUS
     Dosage: 20 U, EACH MORNING
  2. HUMALOG [Suspect]
     Indication: TYPE 2 DIABETES MELLITUS
  3. HUMULIN 70/30 [Suspect]
     Dosage: 12 U, EACH EVENING

REACTIONS (4)
  - HYPERTENSION [None]
  - DRUG INEFFECTIVE [None]
  - UNDERDOSE [None]
  - BLOOD GLUCOSE INCREASED [None]
